FAERS Safety Report 13095428 (Version 1)
Quarter: 2017Q1

REPORT INFORMATION
  Report Type: Spontaneous
  Country: US (occurrence: US)
  Receive Date: 20170108
  Receipt Date: 20170108
  Transmission Date: 20170428
  Serious: No
  Sender: FDA-Public Use
  Company Number: US-BIOGEN-2017BI00338369

PATIENT

DRUGS (1)
  1. TECFIDERA [Suspect]
     Active Substance: DIMETHYL FUMARATE
     Indication: MULTIPLE SCLEROSIS
     Route: 065

REACTIONS (7)
  - Malaise [Unknown]
  - Nasopharyngitis [Unknown]
  - Disability [Not Recovered/Not Resolved]
  - Gait disturbance [Unknown]
  - Bipolar disorder [Unknown]
  - Abasia [Not Recovered/Not Resolved]
  - Fall [Recovered/Resolved]
